FAERS Safety Report 9464312 (Version 2)
Quarter: 2013Q3

REPORT INFORMATION
  Report Type: Spontaneous
  Country: US (occurrence: US)
  Receive Date: 20130819
  Receipt Date: 20130930
  Transmission Date: 20140515
  Serious: No
  Sender: FDA-Public Use
  Company Number: US-PFIZER INC-2013239421

PATIENT
  Age: 80 Year
  Sex: Female
  Weight: 53.52 kg

DRUGS (1)
  1. CELEBREX [Suspect]
     Indication: MUSCLE SPASMS
     Dosage: 200 MG, 1X/DAY
     Dates: start: 20130724, end: 20130818

REACTIONS (2)
  - Off label use [Unknown]
  - Rash generalised [Not Recovered/Not Resolved]
